FAERS Safety Report 5059367-6 (Version None)
Quarter: 2006Q3

REPORT INFORMATION
  Report Type: 
  Country: None (occurrence: None)
  Receive Date: 20060718
  Receipt Date: 20060703
  Transmission Date: 20061208
  Serious: Yes (Hospitalization)
  Sender: FDA-Public Use
  Company Number: PHBS2006BR10175

PATIENT
  Age: 69 Year
  Sex: Female

DRUGS (5)
  1. LAMPRENE [Suspect]
     Dosage: 100 MG
  2. RIFAMPICIN [Suspect]
     Dosage: 300 MG
  3. DAPSONE [Suspect]
     Dosage: 100 MG
  4. THALIDOMIDE [Concomitant]
  5. PREDNISONE [Concomitant]

REACTIONS (1)
  - DERMATITIS EXFOLIATIVE [None]
